FAERS Safety Report 11011781 (Version 2)
Quarter: 2015Q2

REPORT INFORMATION
  Report Type: Spontaneous
  Country: GB (occurrence: GB)
  Receive Date: 20150410
  Receipt Date: 20150430
  Transmission Date: 20150821
  Serious: Yes (Other)
  Sender: FDA-Public Use
  Company Number: GB-009507513-1504GBR005641

PATIENT
  Age: 3 Month
  Sex: Male

DRUGS (14)
  1. SPIRONOLACTONE. [Suspect]
     Active Substance: SPIRONOLACTONE
     Dosage: 3.3 MG, TWICE A DAY
     Route: 048
     Dates: start: 20141225, end: 20150115
  2. CHLOROTHIAZIDE. [Suspect]
     Active Substance: CHLOROTHIAZIDE
     Indication: PRODUCT USED FOR UNKNOWN INDICATION
     Dosage: 41 MG, BID
     Route: 048
     Dates: start: 20150202
  3. LACTULOSE. [Concomitant]
     Active Substance: LACTULOSE
     Indication: PRODUCT USED FOR UNKNOWN INDICATION
     Dosage: 1 ML, THREE TIMES A DAY
     Route: 048
     Dates: start: 20141219
  4. DEXAMETHASONE. [Suspect]
     Active Substance: DEXAMETHASONE
     Dosage: DOSE: 0.45 MG, TWICE A DAY, DAILY DOSE 0.9 MG
     Route: 048
     Dates: start: 20150117, end: 20150120
  5. DEXAMETHASONE. [Suspect]
     Active Substance: DEXAMETHASONE
     Dosage: DOSE: 0.9 MG, TWICE A DAY, DAILY DOSE:1.8 MG
     Route: 048
     Dates: start: 20150115, end: 20150117
  6. SPIRONOLACTONE. [Suspect]
     Active Substance: SPIRONOLACTONE
     Dosage: 3.9 MG, TWICE A DAY
     Route: 048
     Dates: start: 20150116, end: 20150201
  7. ACETAMINOPHEN. [Concomitant]
     Active Substance: ACETAMINOPHEN
     Indication: PRODUCT USED FOR UNKNOWN INDICATION
     Dosage: 50 MG, AS REQUIRED, 4 TO 6 HOURLY WHEN REQUIRED
     Route: 048
     Dates: start: 20141229, end: 20150209
  8. FUROSEMIDE. [Suspect]
     Active Substance: FUROSEMIDE
     Indication: PRODUCT USED FOR UNKNOWN INDICATION
     Dosage: 3.9 MG, TWICE A DAY
     Route: 048
     Dates: start: 20150116
  9. DEXAMETHASONE. [Suspect]
     Active Substance: DEXAMETHASONE
     Indication: PRODUCT USED FOR UNKNOWN INDICATION
     Dosage: 0.25 MG, DAILY
     Route: 048
     Dates: start: 20150124
  10. FUROSEMIDE. [Suspect]
     Active Substance: FUROSEMIDE
     Dosage: 3 MG, TWICE A DAY
     Route: 048
     Dates: start: 20141224, end: 20150115
  11. RANITIDINE [Concomitant]
     Active Substance: RANITIDINE\RANITIDINE HYDROCHLORIDE
     Indication: PRODUCT USED FOR UNKNOWN INDICATION
     Dosage: 11.8 MG, THREE TIMES A DAY
     Route: 048
     Dates: start: 20150116
  12. RANITIDINE [Concomitant]
     Active Substance: RANITIDINE\RANITIDINE HYDROCHLORIDE
     Dosage: 4.7 MG, THREE TIMES A DAY
     Route: 048
     Dates: start: 20141218, end: 20150115
  13. DEXAMETHASONE. [Suspect]
     Active Substance: DEXAMETHASONE
     Dosage: DOSE: 0.25 MG, TWICE A DAY, DAILY DOSE: 0.5 MG
     Route: 048
     Dates: start: 20150121, end: 20150123
  14. SPIRONOLACTONE. [Suspect]
     Active Substance: SPIRONOLACTONE
     Indication: PRODUCT USED FOR UNKNOWN INDICATION
     Dosage: 4.1 MG, TWICE A DAY
     Route: 048
     Dates: start: 20150202

REACTIONS (1)
  - Rib fracture [Recovering/Resolving]

NARRATIVE: CASE EVENT DATE: 201502
